FAERS Safety Report 25611486 (Version 1)
Quarter: 2025Q3

REPORT INFORMATION
  Report Type: Spontaneous
  Country: US (occurrence: None)
  Receive Date: 20250725
  Receipt Date: 20250725
  Transmission Date: 20251020
  Serious: Yes (Other)
  Sender: FDA-CTU
  Company Number: None

PATIENT
  Age: 61 Year
  Sex: Female

DRUGS (1)
  1. SKYRIZI [Suspect]
     Active Substance: RISANKIZUMAB-RZAA

REACTIONS (8)
  - Drug ineffective [None]
  - Skin fissures [None]
  - Bone pain [None]
  - Pain of skin [None]
  - Gait disturbance [None]
  - Muscle spasms [None]
  - Thrombosis [None]
  - Blood pressure abnormal [None]
